FAERS Safety Report 9377071 (Version 1)
Quarter: 2013Q3

REPORT INFORMATION
  Report Type: Spontaneous
  Country: US (occurrence: US)
  Receive Date: 20130701
  Receipt Date: 20130701
  Transmission Date: 20140515
  Serious: No
  Sender: FDA-Public Use
  Company Number: US-JNJFOC-20130611287

PATIENT
  Age: 55 Year
  Sex: Female
  Weight: 53.52 kg

DRUGS (1)
  1. DURAGESIC [Suspect]
     Indication: PAIN
     Route: 062
     Dates: start: 2013

REACTIONS (4)
  - Pain [Recovered/Resolved]
  - Drug ineffective [Recovered/Resolved]
  - Inappropriate schedule of drug administration [Recovered/Resolved]
  - Product quality issue [Unknown]
